FAERS Safety Report 8603543-X (Version None)
Quarter: 2012Q3

REPORT INFORMATION
  Report Type: 
  Country: None (occurrence: None)
  Receive Date: 20120817
  Receipt Date: 20120814
  Transmission Date: 20120928
  Serious: Yes (Hospitalization)
  Sender: FDA-Public Use
  Company Number: US-ROCHE-1099599

PATIENT
  Sex: Female

DRUGS (6)
  1. XELODA [Suspect]
     Indication: BREAST CANCER METASTATIC
     Route: 048
     Dates: start: 20120404, end: 20120611
  2. XELODA [Suspect]
     Route: 048
     Dates: start: 20120622
  3. COUMADIN [Concomitant]
     Route: 048
     Dates: start: 20120606
  4. KEFLEX [Concomitant]
     Route: 048
     Dates: start: 20120608, end: 20120615
  5. AMBIEN [Concomitant]
     Indication: INSOMNIA
     Route: 048
     Dates: start: 20120404
  6. PLAVIX [Concomitant]
     Route: 048
     Dates: start: 20120611, end: 20120811

REACTIONS (3)
  - STENT PLACEMENT [None]
  - OEDEMA PERIPHERAL [None]
  - CELLULITIS [None]
